FAERS Safety Report 8935511 (Version 1)
Quarter: 2012Q4

REPORT INFORMATION
  Report Type: 
  Country: US (occurrence: None)
  Receive Date: 20121128
  Receipt Date: 20121128
  Transmission Date: 20130627
  Serious: Yes (Hospitalization)
  Sender: FDA-Public Use
  Company Number: None

PATIENT
  Sex: Female
  Weight: 54.4 kg

DRUGS (2)
  1. EVEROLIMUS (AFINITOR, RAD-001) [Suspect]
     Dates: end: 20121111
  2. SANDOSTATIN [Suspect]
     Dates: end: 20121109

REACTIONS (2)
  - Colitis [None]
  - Clostridium test positive [None]
